FAERS Safety Report 9134051 (Version 3)
Quarter: 2013Q2

REPORT INFORMATION
  Report Type: Spontaneous
  Country: US (occurrence: US)
  Receive Date: 20130304
  Receipt Date: 20130428
  Transmission Date: 20140414
  Serious: Yes (Other)
  Sender: FDA-Public Use
  Company Number: US-009507513-1302USA010531

PATIENT
  Age: 92 Year
  Sex: Female

DRUGS (1)
  1. INVANZ [Suspect]
     Dosage: UNK
     Route: 042
     Dates: start: 20130211

REACTIONS (3)
  - Abasia [Recovered/Resolved]
  - Crying [Not Recovered/Not Resolved]
  - Asthenia [Recovered/Resolved]
